FAERS Safety Report 8424684-6 (Version None)
Quarter: 2012Q2

REPORT INFORMATION
  Report Type: 
  Country: None (occurrence: None)
  Receive Date: 20120605
  Receipt Date: 20120605
  Transmission Date: 20120825
  Serious: No
  Sender: FDA-Public Use
  Company Number: None

PATIENT
  Age: 60 Year
  Sex: Male
  Weight: 77.1115 kg

DRUGS (1)
  1. REUMOFAN [Suspect]
     Indication: ARTHRALGIA
     Dosage: ONE DAILY PO
     Route: 048
     Dates: start: 20120420, end: 20120605

REACTIONS (2)
  - ABDOMINAL PAIN LOWER [None]
  - RECTAL HAEMORRHAGE [None]
